FAERS Safety Report 12232503 (Version 2)
Quarter: 2016Q2

REPORT INFORMATION
  Report Type: Spontaneous
  Country: FR (occurrence: FR)
  Receive Date: 20160401
  Receipt Date: 20160420
  Transmission Date: 20160815
  Serious: No
  Sender: FDA-Public Use
  Company Number: FR-009507513-1603FRA008429

PATIENT
  Age: 11 Year
  Sex: Female

DRUGS (1)
  1. GRAZAX [Suspect]
     Active Substance: PHLEUM PRATENSE POLLEN
     Indication: SEASONAL ALLERGY
     Dosage: UNKNOWN
     Route: 065
     Dates: start: 20160301, end: 20160307

REACTIONS (7)
  - Chest pain [Unknown]
  - Ear pruritus [Unknown]
  - Dysphagia [Unknown]
  - Pharyngeal oedema [Unknown]
  - Dyspnoea [Unknown]
  - Oral pruritus [Unknown]
  - Throat irritation [Unknown]

NARRATIVE: CASE EVENT DATE: 20160301
